FAERS Safety Report 5327894-X (Version None)
Quarter: 2007Q2

REPORT INFORMATION
  Report Type: 
  Country: None (occurrence: None)
  Receive Date: 20070517
  Receipt Date: 20070507
  Transmission Date: 20071010
  Serious: Yes (Other)
  Sender: FDA-Public Use
  Company Number: BR-PFIZER INC-2007034562

PATIENT
  Sex: Female
  Weight: 56 kg

DRUGS (4)
  1. DEPO-PROVERA [Suspect]
     Indication: MENORRHAGIA
     Dates: start: 20061101, end: 20061101
  2. DEPO-PROVERA [Suspect]
     Dates: start: 20070401, end: 20070401
  3. CAPTOPRIL [Concomitant]
     Indication: HYPERTENSION
     Dosage: TEXT:2 TABLETS TWICE DAILY
     Route: 048
  4. AMITRIPTYLINE HCL [Concomitant]
     Indication: DEPRESSION
     Dosage: TEXT:1 TABLET DAILY
     Route: 048
     Dates: start: 19910101

REACTIONS (4)
  - BLOOD CHOLESTEROL INCREASED [None]
  - INCORRECT DOSE ADMINISTERED [None]
  - MENORRHAGIA [None]
  - UTERINE LEIOMYOMA [None]
